FAERS Safety Report 23380140 (Version 1)
Quarter: 2024Q1

REPORT INFORMATION
  Report Type: Spontaneous
  Country: GB (occurrence: GB)
  Receive Date: 20240109
  Receipt Date: 20240109
  Transmission Date: 20240410
  Serious: Yes (Other)
  Sender: FDA-Public Use
  Company Number: GB-ABBVIE-4344714

PATIENT
  Age: 59 Year
  Sex: Male

DRUGS (24)
  1. NAPROXEN [Suspect]
     Active Substance: NAPROXEN
     Indication: Pain
     Dosage: UNK
     Route: 065
     Dates: start: 2023
  2. CARBIDOPA\LEVODOPA [Suspect]
     Active Substance: CARBIDOPA\LEVODOPA
     Indication: Parkinson^s disease
     Dosage: UNK, MD:9.6, ED:1.2, CR:1.3 MLS/HR .FIRST AND LAST DATE WAS 2023.; ;
     Route: 050
     Dates: start: 2023, end: 2023
  3. CARBIDOPA\LEVODOPA [Suspect]
     Active Substance: CARBIDOPA\LEVODOPA
     Dosage: UNK, MD: 9.6 CR:2.2 ED: 1.2, 20MGS/5MGS.FIRST AND LAST DATE WAS 2023.; ;
     Route: 050
     Dates: start: 2023, end: 2023
  4. CARBIDOPA\LEVODOPA [Suspect]
     Active Substance: CARBIDOPA\LEVODOPA
     Dosage: UNK, MD:9.6MLS CR:1.5MLS ED:1.2MLS, 20MGS/5MGS.FIRST AND LAST DATE WAS 2023.; ;
     Route: 050
     Dates: start: 2023, end: 2023
  5. CARBIDOPA\LEVODOPA [Suspect]
     Active Substance: CARBIDOPA\LEVODOPA
     Dosage: UNK, DUODOPA 20MGS/5MGS; MD:10.0, ED: 1.2, CR:0.9 FIRST AND LAST DATE WAS 2023.; ;
     Route: 050
     Dates: start: 2023, end: 2023
  6. CARBIDOPA\LEVODOPA [Suspect]
     Active Substance: CARBIDOPA\LEVODOPA
     Dosage: UNK, MD:9.6, ED:1.2, CR:1.3 MLS/HR FIRST AND LAST DATE WAS 2023.; ;
     Route: 050
     Dates: start: 2023, end: 2023
  7. CARBIDOPA\LEVODOPA [Suspect]
     Active Substance: CARBIDOPA\LEVODOPA
     Dosage: UNK, DUODOPA 20MGS/5MGS; MD:10.0, ED: 1.2, CR:0.9; ;
     Route: 050
     Dates: start: 2023, end: 2023
  8. CARBIDOPA\LEVODOPA [Suspect]
     Active Substance: CARBIDOPA\LEVODOPA
     Dosage: UNK, MD:9.6, ED:1.2, CR:1.3 MLS/HR; ;
     Route: 065
     Dates: start: 2023, end: 2023
  9. CARBIDOPA\LEVODOPA [Suspect]
     Active Substance: CARBIDOPA\LEVODOPA
     Dosage: UNK, MD: 9.8, ED: 1.2, CR: 1.1, 20MGS/5MGS, FIRST AND LAST DATE WAS 2023.; ;
     Route: 050
     Dates: start: 2023, end: 2023
  10. CARBIDOPA\LEVODOPA [Suspect]
     Active Substance: CARBIDOPA\LEVODOPA
     Dosage: UNK, MD:10.2, ED: 1.4, CR:1.1 FIRST AND LAST DATE WAS 2023.; ;
     Route: 050
     Dates: start: 2023, end: 2023
  11. CARBIDOPA\LEVODOPA [Suspect]
     Active Substance: CARBIDOPA\LEVODOPA
     Dosage: UNK, MD: 9.6MLS CR: 2.1MLS/ HR ED:1.2 MLS, 0830-2230 LLO MORNING DOSE LOCK OUT 14 HOURS FIRST ADMIN
     Route: 050
     Dates: start: 2023, end: 20231219
  12. CARBIDOPA\LEVODOPA [Suspect]
     Active Substance: CARBIDOPA\LEVODOPA
     Dosage: UNK, MD:10.2, ED: 1.4, CR:1.1 LAST DATE WAS 2023.; ;
     Route: 050
     Dates: start: 202302, end: 2023
  13. CARBIDOPA\LEVODOPA [Suspect]
     Active Substance: CARBIDOPA\LEVODOPA
     Dosage: UNK, MD: 9.6 MLS  ED : 1.2 MLS  CR:1.8 MLS, 20MGS/5MGS.FIRST AND LAST DATE WAS 2023.; ;
     Route: 050
     Dates: start: 20231219
  14. ACETAMINOPHEN [Concomitant]
     Active Substance: ACETAMINOPHEN
     Indication: Pain
     Dosage: 1 GRAM, TIME INTERVAL: 0.25 D
     Route: 065
     Dates: start: 2023
  15. SELEGILINE [Concomitant]
     Active Substance: SELEGILINE
     Indication: Parkinson^s disease
     Dosage: 10 MILLIGRAM, TIME INTERVAL:
     Route: 050
  16. SELEGILINE [Concomitant]
     Active Substance: SELEGILINE
     Dosage: 10 MILLIGRAM
     Route: 050
  17. SELEGILINE [Concomitant]
     Active Substance: SELEGILINE
     Dosage: 1 MILLIGRAM
     Route: 065
  18. PRAMIPEXOLE [Concomitant]
     Active Substance: PRAMIPEXOLE\PRAMIPEXOLE DIHYDROCHLORIDE
     Indication: Parkinson^s disease
     Dosage: 0.7 MILLIGRAM, TIME INTERVAL:
     Route: 050
  19. PRAMIPEXOLE [Concomitant]
     Active Substance: PRAMIPEXOLE\PRAMIPEXOLE DIHYDROCHLORIDE
     Dosage: 0.7,0.7 +1.1 MGS; ;
     Route: 065
  20. PRAMIPEXOLE [Concomitant]
     Active Substance: PRAMIPEXOLE\PRAMIPEXOLE DIHYDROCHLORIDE
     Dosage: 0.7MG X1 AT 0800 AND 1400. 1.5MG AT 22008AM, 3PM, 1 AND HALF TABLETS AT 10:30PM; ;
     Route: 050
  21. PRAMIPEXOLE [Concomitant]
     Active Substance: PRAMIPEXOLE\PRAMIPEXOLE DIHYDROCHLORIDE
     Dosage: 0.7,0.7 +1.1 MGS; ;
     Route: 050
  22. PRAMIPEXOLE [Concomitant]
     Active Substance: PRAMIPEXOLE\PRAMIPEXOLE DIHYDROCHLORIDE
     Dosage: 0.7MG X1 AT 0800 AND 1400. 1.5MG AT 2200; ;
     Route: 065
  23. CARBIDOPA\LEVODOPA [Concomitant]
     Active Substance: CARBIDOPA\LEVODOPA
     Indication: Product used for unknown indication
     Dosage: 50/200MG CR;
     Route: 065
  24. AMANTADINE [Concomitant]
     Active Substance: AMANTADINE
     Indication: Parkinson^s disease
     Dosage: TIME INTERVAL:
     Route: 050

REACTIONS (25)
  - Freezing phenomenon [Recovering/Resolving]
  - Device power source issue [Recovering/Resolving]
  - Dyskinesia [Not Recovered/Not Resolved]
  - Parkinson^s disease [Recovering/Resolving]
  - Weight decreased [Recovered/Resolved]
  - Aggression [Unknown]
  - Anxiety [Unknown]
  - Device difficult to use [Recovering/Resolving]
  - Incorrect dose administered [Unknown]
  - Arthritis [Recovering/Resolving]
  - Mobility decreased [Unknown]
  - Gait disturbance [Unknown]
  - Device leakage [Recovered/Resolved]
  - Device dislocation [Not Recovered/Not Resolved]
  - Device connection issue [Recovered/Resolved]
  - Fall [Recovering/Resolving]
  - Hip arthroplasty [Recovering/Resolving]
  - Muscle rigidity [Not Recovered/Not Resolved]
  - Abnormal dreams [Not Recovered/Not Resolved]
  - Post procedural complication [Not Recovered/Not Resolved]
  - Hallucination [Recovered/Resolved]
  - Cognitive disorder [Not Recovered/Not Resolved]
  - Procedural pain [Not Recovered/Not Resolved]
  - Stoma site reaction [Unknown]
  - Stoma site erythema [Not Recovered/Not Resolved]

NARRATIVE: CASE EVENT DATE: 20230101
